FAERS Safety Report 6412548-9 (Version None)
Quarter: 2009Q4

REPORT INFORMATION
  Report Type: 
  Country: None (occurrence: None)
  Receive Date: 20091023
  Receipt Date: 20091014
  Transmission Date: 20100525
  Serious: Yes (Death)
  Sender: FDA-Public Use
  Company Number: JP-BRISTOL-MYERS SQUIBB COMPANY-14825053

PATIENT
  Age: 65 Year
  Sex: Male

DRUGS (3)
  1. MITOMYCIN [Suspect]
     Indication: GASTRIC CANCER
  2. TEGAFUR [Suspect]
     Indication: GASTRIC CANCER
  3. RADIATION THERAPY [Suspect]
     Indication: GASTRIC CANCER

REACTIONS (1)
  - ACUTE PROMYELOCYTIC LEUKAEMIA [None]
